FAERS Safety Report 5471905-8 (Version None)
Quarter: 2007Q3

REPORT INFORMATION
  Report Type: 
  Country: None (occurrence: None)
  Receive Date: 20070928
  Receipt Date: 20070918
  Transmission Date: 20080115
  Serious: Yes (Other)
  Sender: FDA-Public Use
  Company Number: NL-PFIZER INC-2007078353

PATIENT
  Sex: Female

DRUGS (7)
  1. LYRICA [Suspect]
     Indication: NEURALGIA
     Route: 048
  2. DIAZEPAM [Concomitant]
     Dates: start: 20070623, end: 20070701
  3. CITALOPRAM HYDROBROMIDE [Concomitant]
  4. IRBESARTAN [Concomitant]
     Dates: start: 20030901, end: 20070701
  5. EMCOR [Concomitant]
  6. PARACETAMOL [Concomitant]
  7. DURAGESIC-100 [Concomitant]
     Route: 061

REACTIONS (4)
  - DYSPHONIA [None]
  - FEELING DRUNK [None]
  - OEDEMA PERIPHERAL [None]
  - SOMNOLENCE [None]
